FAERS Safety Report 20336239 (Version 1)
Quarter: 2022Q1

REPORT INFORMATION
  Report Type: Spontaneous
  Country: AT (occurrence: None)
  Receive Date: 20220114
  Receipt Date: 20220114
  Transmission Date: 20220423
  Serious: Yes (Hospitalization)
  Sender: FDA-Public Use
  Company Number: 2022A008301

PATIENT
  Age: 73 Year
  Sex: Male

DRUGS (1)
  1. TICAGRELOR [Suspect]
     Active Substance: TICAGRELOR
     Dosage: 1-0-1
     Route: 048
     Dates: end: 20210427

REACTIONS (1)
  - Paragonimiasis [Recovered/Resolved]

NARRATIVE: CASE EVENT DATE: 20210427
